FAERS Safety Report 6437760-4 (Version None)
Quarter: 2009Q4

REPORT INFORMATION
  Report Type: 
  Country: None (occurrence: None)
  Receive Date: 20091112
  Receipt Date: 20091103
  Transmission Date: 20100525
  Serious: Yes (Hospitalization)
  Sender: FDA-Public Use
  Company Number: US-ABBOTT-08P-163-0493064-00

PATIENT
  Sex: Male
  Weight: 103.97 kg

DRUGS (12)
  1. HUMIRA [Suspect]
     Indication: COLITIS ULCERATIVE
     Route: 058
     Dates: start: 20080311, end: 20081219
  2. TYLENOL ALLERGY [Concomitant]
     Indication: DRUG USE FOR UNKNOWN INDICATION
     Dates: start: 20081011
  3. ROBITUSSIN AC [Concomitant]
     Indication: PNEUMONIA
     Dates: start: 20081001, end: 20081004
  4. TYLENOL (CAPLET) [Concomitant]
     Indication: TENSION HEADACHE
     Dates: start: 20070101
  5. TYLENOL (CAPLET) [Concomitant]
     Indication: MIGRAINE
     Dates: start: 20061001
  6. PREDNISONE [Concomitant]
     Indication: COLITIS ULCERATIVE
     Dates: start: 20081003, end: 20081003
  7. PREDNISONE [Concomitant]
     Dates: start: 20081018, end: 20081024
  8. PREDNISONE [Concomitant]
     Dates: start: 20081025, end: 20081030
  9. PREDNISONE [Concomitant]
     Dates: start: 20081031, end: 20081106
  10. PREDNISONE [Concomitant]
     Dates: start: 20081107, end: 20081113
  11. IRON SUPPLEMENT [Concomitant]
     Indication: ANAEMIA
     Dates: start: 20081121
  12. FLAGYL [Concomitant]
     Indication: BRONCHITIS
     Dates: start: 20081210, end: 20081211

REACTIONS (1)
  - PNEUMONIA BACTERIAL [None]
